FAERS Safety Report 10385571 (Version 1)
Quarter: 2014Q3

REPORT INFORMATION
  Report Type: Report from Study
  Country: IL (occurrence: IL)
  Receive Date: 20140814
  Receipt Date: 20140814
  Transmission Date: 20150326
  Serious: Yes (Death)
  Sender: FDA-Public Use
  Company Number: IL-BAYER-2014-118157

PATIENT
  Age: 67 Year
  Sex: Female

DRUGS (2)
  1. BACLOSAL [Concomitant]
     Dosage: UNK
  2. BETAFERON [Suspect]
     Active Substance: INTERFERON BETA-1B
     Indication: MULTIPLE SCLEROSIS
     Dosage: UNK
     Dates: start: 20080610

REACTIONS (1)
  - Death [Fatal]

NARRATIVE: CASE EVENT DATE: 20140101
